FAERS Safety Report 10286343 (Version 2)
Quarter: 2014Q3

REPORT INFORMATION
  Report Type: Spontaneous
  Country: GB (occurrence: None)
  Receive Date: 20140707
  Receipt Date: 20140709
  Transmission Date: 20150326
  Serious: Yes (Hospitalization)
  Sender: FDA-Public Use
  Company Number: SYM-2014-22539

PATIENT
  Sex: Male

DRUGS (11)
  1. METRONIDAZOLE. [Suspect]
     Active Substance: METRONIDAZOLE
     Indication: DIVERTICULITIS
     Route: 048
     Dates: start: 20140510, end: 20140517
  2. EZETIMIBE. [Concomitant]
     Active Substance: EZETIMIBE
  3. TIMOLOL (TIMOLOL) (NONE) [Concomitant]
     Active Substance: TIMOLOL
  4. ALLOPURINOL (ALLOPURINOL) [Concomitant]
     Active Substance: ALLOPURINOL
  5. LANSOPRAZOLE (LANSOPRAZOLE) [Concomitant]
     Active Substance: LANSOPRAZOLE
  6. LATANOPROST. [Concomitant]
     Active Substance: LATANOPROST
  7. TAMSULOSIN [Concomitant]
     Active Substance: TAMSULOSIN
  8. BUSCOPAN [Concomitant]
     Active Substance: BUTYLSCOPOLAMINE BROMIDE
  9. AMOXICILLIN (AMOXICILLIN) [Suspect]
     Active Substance: AMOXICILLIN
     Indication: DIVERTICULITIS
     Route: 048
     Dates: start: 20140510, end: 20140517
  10. METRONIDAZOLE BENZOATE [Suspect]
     Active Substance: METRONIDAZOLE BENZOATE
     Indication: DIVERTICULITIS
     Route: 042
     Dates: start: 20140507, end: 20140510
  11. TRAMADOL (TRAMADOL HYDROCHLORIDE) [Concomitant]
     Active Substance: TRAMADOL HYDROCHLORIDE

REACTIONS (5)
  - Tongue discolouration [None]
  - Fatigue [None]
  - Headache [None]
  - Dizziness [None]
  - Nightmare [None]
